FAERS Safety Report 11410132 (Version 2)
Quarter: 2015Q3

REPORT INFORMATION
  Report Type: Spontaneous
  Country: US (occurrence: US)
  Receive Date: 20150824
  Receipt Date: 20150824
  Transmission Date: 20151125
  Serious: No
  Sender: FDA-Public Use
  Company Number: PHEH2015US015863

PATIENT
  Sex: Female
  Weight: 68.93 kg

DRUGS (5)
  1. BACLOFEN. [Suspect]
     Active Substance: BACLOFEN
     Indication: PRODUCT USED FOR UNKNOWN INDICATION
     Dosage: 1 TABLET AT BED TME, QHS
     Route: 048
     Dates: start: 20130605, end: 20140819
  2. TRAMADOL HYDROCHLORIDE. [Suspect]
     Active Substance: TRAMADOL HYDROCHLORIDE
     Indication: PAIN
     Dosage: 1 TABLET EVERY 6 HOURS, PRN
     Route: 048
     Dates: start: 20140723, end: 20140723
  3. GABAPENTIN. [Suspect]
     Active Substance: GABAPENTIN
     Indication: PRODUCT USED FOR UNKNOWN INDICATION
     Dosage: 2 DF, BID
     Route: 048
     Dates: start: 20080229, end: 20140807
  4. GILENYA [Suspect]
     Active Substance: FINGOLIMOD HYDROCHLORIDE
     Indication: MULTIPLE SCLEROSIS
     Dosage: 0.5 MG, QD
     Route: 048
     Dates: start: 20120328, end: 20140807
  5. FLOMAX//MORNIFLUMATE [Concomitant]
     Indication: PRODUCT USED FOR UNKNOWN INDICATION
     Dosage: 1 DF, QD
     Route: 048
     Dates: start: 20110706

REACTIONS (7)
  - Delivery [Unknown]
  - Hypoaesthesia [Unknown]
  - Balance disorder [Unknown]
  - Maternal exposure during pregnancy [Unknown]
  - Weight increased [Unknown]
  - Blood pressure systolic decreased [Unknown]
  - Blood pressure diastolic decreased [Unknown]
